FAERS Safety Report 9344639 (Version 1)
Quarter: 2013Q2

REPORT INFORMATION
  Report Type: Report from Study
  Country: US (occurrence: US)
  Receive Date: 20130612
  Receipt Date: 20130612
  Transmission Date: 20140414
  Serious: Yes (Hospitalization)
  Sender: FDA-Public Use
  Company Number: US-ABBOTT-13P-163-1059165-00

PATIENT
  Age: 76 Year
  Sex: Female
  Weight: 72.64 kg

DRUGS (7)
  1. HUMIRA [Suspect]
     Indication: RHEUMATOID ARTHRITIS
     Route: 058
     Dates: end: 2012
  2. HUMIRA [Suspect]
     Route: 058
     Dates: start: 201302
  3. METHOTREXATE [Concomitant]
     Indication: RHEUMATOID ARTHRITIS
  4. CLINORIL [Concomitant]
     Indication: RHEUMATOID ARTHRITIS
  5. FOLIC ACID [Concomitant]
     Indication: VITAMIN SUPPLEMENTATION
  6. SULINDAC [Concomitant]
     Indication: RHEUMATOID ARTHRITIS
  7. SULINDAC [Concomitant]
     Indication: VITAMIN SUPPLEMENTATION

REACTIONS (6)
  - Unresponsive to stimuli [Recovered/Resolved]
  - Immune system disorder [Recovered/Resolved]
  - Sinusitis [Recovered/Resolved]
  - Kidney infection [Recovered/Resolved]
  - Rheumatoid arthritis [Recovered/Resolved]
  - Balance disorder [Recovered/Resolved]
